FAERS Safety Report 4647348-3 (Version None)
Quarter: 2005Q2

REPORT INFORMATION
  Report Type: 
  Country: None (occurrence: None)
  Receive Date: 20050428
  Receipt Date: 20050425
  Transmission Date: 20051028
  Serious: Yes (Life-Threatening, Hospitalization)
  Sender: FDA-Public Use
  Company Number: PHBS2005SE05908

PATIENT
  Age: 75 Year
  Sex: Female

DRUGS (4)
  1. METFORMIN HCL [Concomitant]
     Indication: DIABETES MELLITUS NON-INSULIN-DEPENDENT
     Dosage: 1 G, TID
  2. CALCIUM CHLORIDE [Concomitant]
  3. DICLOFENAC SODIUM [Suspect]
     Indication: CHOLELITHIASIS
     Dosage: 50 MG, TID
     Route: 048
  4. DICLOFENAC SODIUM [Suspect]
     Route: 054

REACTIONS (16)
  - ABDOMINAL PAIN UPPER [None]
  - ANOREXIA [None]
  - ANURIA [None]
  - BLOOD CREATININE INCREASED [None]
  - BLOOD GLUCOSE INCREASED [None]
  - BLOOD PRESSURE DECREASED [None]
  - BLOOD UREA INCREASED [None]
  - CONFUSIONAL STATE [None]
  - HYPERKALAEMIA [None]
  - HYPOTHERMIA [None]
  - METABOLIC ACIDOSIS [None]
  - NAUSEA [None]
  - OXYGEN SATURATION IMMEASURABLE [None]
  - PULSE ABSENT [None]
  - RESPIRATORY RATE INCREASED [None]
  - SYNCOPE [None]
